FAERS Safety Report 7746212-0 (Version None)
Quarter: 2011Q3

REPORT INFORMATION
  Report Type: 
  Country: None (occurrence: None)
  Receive Date: 20110913
  Receipt Date: 20110905
  Transmission Date: 20111222
  Serious: Yes (Death, Life-Threatening, Other)
  Sender: FDA-Public Use
  Company Number: JP-ROCHE-801117

PATIENT
  Sex: Male
  Weight: 48 kg

DRUGS (8)
  1. DEXAMETHASONE SODIUM PHOSPHATE [Concomitant]
     Route: 041
     Dates: start: 20110728, end: 20110729
  2. FERROUS SULFATE TAB [Concomitant]
     Route: 048
     Dates: start: 20110727, end: 20110807
  3. HERCEPTIN [Suspect]
     Indication: METASTATIC GASTRIC CANCER
     Route: 041
     Dates: start: 20110725, end: 20110725
  4. TS-1 [Suspect]
     Indication: METASTATIC GASTRIC CANCER
     Route: 041
     Dates: start: 20110725, end: 20110807
  5. CISPLATIN [Suspect]
     Indication: METASTATIC GASTRIC CANCER
     Route: 041
     Dates: start: 20110727, end: 20110727
  6. DEXAMETHASONE SODIUM PHOSPHATE [Concomitant]
     Route: 041
     Dates: start: 20110727, end: 20110727
  7. LOXOPROFEN [Concomitant]
     Route: 048
     Dates: end: 20110807
  8. GRANISETRON HYDROCHLORIDE [Concomitant]
     Route: 041
     Dates: start: 20110727, end: 20110729

REACTIONS (15)
  - NAUSEA [None]
  - DECREASED APPETITE [None]
  - DEHYDRATION [None]
  - METASTASES TO PERITONEUM [None]
  - MESENTERIC ARTERY THROMBOSIS [None]
  - BONE MARROW FAILURE [None]
  - BLOOD POTASSIUM INCREASED [None]
  - INSOMNIA [None]
  - ABDOMINAL PAIN [None]
  - RENAL IMPAIRMENT [None]
  - DIARRHOEA [None]
  - VOMITING [None]
  - DISSEMINATED INTRAVASCULAR COAGULATION [None]
  - PNEUMONIA ASPIRATION [None]
  - ARTERIOSCLEROSIS [None]
